FAERS Safety Report 5780769-4 (Version None)
Quarter: 2008Q2

REPORT INFORMATION
  Report Type: 
  Country: None (occurrence: None)
  Receive Date: 20080620
  Receipt Date: 20080612
  Transmission Date: 20081010
  Serious: Yes (Other)
  Sender: FDA-Public Use
  Company Number: CA-ABBOTT-08P-028-0437737-00

PATIENT
  Sex: Female
  Weight: 56.75 kg

DRUGS (14)
  1. HUMIRA [Suspect]
     Indication: RHEUMATOID ARTHRITIS
     Route: 058
     Dates: end: 20080201
  2. TERBUTALINE SULFATE [Concomitant]
     Indication: DRUG USE FOR UNKNOWN INDICATION
  3. CALCIUM-SANDOZ [Concomitant]
     Indication: DRUG USE FOR UNKNOWN INDICATION
  4. DICLOFENAC SODIUM [Concomitant]
     Indication: DRUG USE FOR UNKNOWN INDICATION
  5. FOLIC ACID [Concomitant]
     Indication: DRUG USE FOR UNKNOWN INDICATION
  6. HALIBUT OIL TABLETS [Concomitant]
     Indication: DRUG USE FOR UNKNOWN INDICATION
  7. METHOTREXATE [Concomitant]
     Indication: DRUG USE FOR UNKNOWN INDICATION
  8. MULTI-VITAMIN [Concomitant]
     Indication: DRUG USE FOR UNKNOWN INDICATION
  9. ESOMEPRAZOLE MAGNESIUM [Concomitant]
     Indication: DRUG USE FOR UNKNOWN INDICATION
  10. BUDESONIDE [Concomitant]
     Indication: DRUG USE FOR UNKNOWN INDICATION
  11. ACETAMINOPHEN [Concomitant]
     Indication: DRUG USE FOR UNKNOWN INDICATION
  12. B-KOMPLEX [Concomitant]
     Indication: DRUG USE FOR UNKNOWN INDICATION
  13. ASCORBIC ACID [Concomitant]
     Indication: DRUG USE FOR UNKNOWN INDICATION
  14. TOCOPHEROL CONCENTRATE CAP [Concomitant]
     Indication: DRUG USE FOR UNKNOWN INDICATION

REACTIONS (8)
  - DIPLOPIA [None]
  - EYELID DISORDER [None]
  - LACRIMATION INCREASED [None]
  - LYMPHOMA [None]
  - NASAL OEDEMA [None]
  - OCULAR NEOPLASM [None]
  - SWOLLEN TEAR DUCT [None]
  - VISION BLURRED [None]
